FAERS Safety Report 7500409-3 (Version None)
Quarter: 2011Q2

REPORT INFORMATION
  Report Type: 
  Country: None (occurrence: None)
  Receive Date: 20110524
  Receipt Date: 20110427
  Transmission Date: 20111010
  Serious: No
  Sender: FDA-Public Use
  Company Number: US-BRISTOL-MYERS SQUIBB COMPANY-15568181

PATIENT
  Age: 78 Year
  Sex: Female

DRUGS (9)
  1. HYDROCHLOROTHIAZIDE [Concomitant]
  2. CHLORTHALIDONE [Concomitant]
     Indication: OEDEMA
     Dosage: CHLORTHALIDONE 25MG TABS
     Route: 048
  3. LISINOPRIL AND HYDROCHLOROTHIAZIDE [Concomitant]
     Dosage: LISINOPRIL + HYDROCHLORTHIAZIDE 20-12.5MG TABS
     Route: 048
  4. GLYBURIDE [Concomitant]
     Dosage: GLYBURIDE 2.5MG TABS
     Route: 048
  5. ASPIRIN [Concomitant]
  6. ASCORBIC ACID [Concomitant]
     Dosage: VITAMIN C 1000MG TABS
  7. QUESTRAN LIGHT [Concomitant]
     Dosage: QUESTRAN LIGHT 4GM PACK 1DF: 1 PACK
  8. ONGLYZA [Suspect]
     Indication: TYPE 2 DIABETES MELLITUS
     Dosage: DOSE REDUCED TO 2.5MG THEN DISCONTINUED.
     Dates: start: 20110216
  9. VITAMIN B-12 [Concomitant]
     Dosage: TABS

REACTIONS (2)
  - RASH [None]
  - ARTHRALGIA [None]
